FAERS Safety Report 18904337 (Version 1)
Quarter: 2021Q1

REPORT INFORMATION
  Report Type: Other
  Country: IT (occurrence: IT)
  Receive Date: 20210217
  Receipt Date: 20210217
  Transmission Date: 20210420
  Serious: Yes (Other)
  Sender: FDA-Public Use
  Company Number: IT-ROCHE-2766177

PATIENT
  Age: 71 Year
  Sex: Male

DRUGS (5)
  1. OCRELIZUMAB. [Suspect]
     Active Substance: OCRELIZUMAB
     Route: 042
  2. FLEBOCORTID [Concomitant]
     Active Substance: HYDROCORTISONE SODIUM SUCCINATE
  3. TACHIPIRINA [Concomitant]
     Active Substance: ACETAMINOPHEN
  4. TRIMETON [Concomitant]
     Active Substance: CHLORPHENIRAMINE MALEATE
  5. OCRELIZUMAB. [Suspect]
     Active Substance: OCRELIZUMAB
     Indication: PRIMARY PROGRESSIVE MULTIPLE SCLEROSIS
     Dosage: 7TH INFUSION (FIFTH CYCLE) OF COMPASSIONATE USE OCREVUS 600 MG HAS BEEN PERFORMED.
     Route: 042
     Dates: start: 20180124

REACTIONS (9)
  - Lipase increased [Unknown]
  - Muscle spasticity [Unknown]
  - Hyperreflexia [Unknown]
  - Tuberculosis [Unknown]
  - Urinary incontinence [Unknown]
  - Intraductal papillary mucinous neoplasm [Unknown]
  - Pancreatitis [Unknown]
  - Micturition urgency [Unknown]
  - Amylase increased [Unknown]

NARRATIVE: CASE EVENT DATE: 20201012
